FAERS Safety Report 11947857 (Version 4)
Quarter: 2016Q4

REPORT INFORMATION
  Report Type: Report from Study
  Country: IT (occurrence: IT)
  Receive Date: 20160125
  Receipt Date: 20161018
  Transmission Date: 20170206
  Serious: Yes (Death, Hospitalization, Other)
  Sender: FDA-Public Use
  Company Number: IT-AMGEN-ITASP2016007815

PATIENT
  Age: 73 Year
  Sex: Female
  Weight: 73 kg

DRUGS (6)
  1. CARFILZOMIB [Suspect]
     Active Substance: CARFILZOMIB
     Indication: PLASMA CELL MYELOMA
     Dosage: 20 MG/M2, ON DAY 1, 2, 8, 9, AND 15 OF FIRST CYCLE
     Route: 042
     Dates: start: 20151111
  2. CARFILZOMIB [Suspect]
     Active Substance: CARFILZOMIB
     Dosage: 56 MG/M2, DAY 16 OF FIRST CYCLE
     Route: 042
  3. CARFILZOMIB [Suspect]
     Active Substance: CARFILZOMIB
     Dosage: 46 MG/M2, ON DAY 1, 2, 8, 9,15 AND 16 OF SECOND CYCLE
     Route: 042
     Dates: end: 20151229
  4. GRANISETRON [Concomitant]
     Active Substance: GRANISETRON
     Indication: NAUSEA
     Dosage: 3.1 MG/H
     Route: 062
     Dates: start: 20151210, end: 20160104
  5. ACYCLOVIR. [Concomitant]
     Active Substance: ACYCLOVIR
     Dosage: 400 MG, BID
     Route: 048
     Dates: start: 20151111
  6. DEXAMETHASONE. [Concomitant]
     Active Substance: DEXAMETHASONE
     Dosage: 20 MG, DAY 1,2,8,9,15,16
     Route: 042
     Dates: start: 20151111, end: 20151229

REACTIONS (14)
  - Atrial fibrillation [Fatal]
  - Thrombocytopenia [Unknown]
  - Nausea [Unknown]
  - Dyspnoea [Unknown]
  - Cardiac arrest [Fatal]
  - Hyperpyrexia [Recovered/Resolved]
  - Cardiac septal hypertrophy [Unknown]
  - Brain natriuretic peptide increased [Unknown]
  - Crepitations [Unknown]
  - Dyspepsia [Unknown]
  - Renal failure [Unknown]
  - Respiratory failure [Unknown]
  - Pleural effusion [Recovered/Resolved]
  - Anaemia [Unknown]

NARRATIVE: CASE EVENT DATE: 2015
